FAERS Safety Report 7922258-4 (Version None)
Quarter: 2011Q4

REPORT INFORMATION
  Report Type: 
  Country: None (occurrence: None)
  Receive Date: 20111117
  Receipt Date: 20110118
  Transmission Date: 20120403
  Serious: No
  Sender: FDA-Public Use
  Company Number: US-AMGEN-USASP2011003219

PATIENT
  Age: 47 Year
  Sex: Female

DRUGS (4)
  1. PLAQUENIL [Concomitant]
     Dates: start: 20070101
  2. AZULFIDINE [Concomitant]
     Dates: start: 20070101
  3. METHOTREXATE [Concomitant]
     Dates: start: 20070101
  4. ENBREL [Suspect]
     Indication: RHEUMATOID ARTHRITIS
     Dosage: 50 MG, QWK
     Dates: start: 20110101

REACTIONS (2)
  - ARTHRALGIA [None]
  - NAUSEA [None]
